FAERS Safety Report 6137238-1 (Version None)
Quarter: 2009Q1

REPORT INFORMATION
  Report Type: 
  Country: None (occurrence: None)
  Receive Date: 20090330
  Receipt Date: 20090326
  Transmission Date: 20090719
  Serious: Yes (Life-Threatening, Hospitalization)
  Sender: FDA-Public Use
  Company Number: PHHY2008CA10852

PATIENT
  Sex: Male

DRUGS (15)
  1. SANDOSTATIN LAR [Suspect]
     Indication: ACROMEGALY
     Dosage: 40 MG, QMO
     Route: 030
     Dates: start: 20060928
  2. BROMOCRIPTINE MESYLATE [Suspect]
     Dosage: 0.5 G, UNK
     Dates: start: 20080401, end: 20080526
  3. LANOXIN [Concomitant]
     Dosage: 1.2 UNK, UNK
  4. FUROSEMIDE [Concomitant]
     Dosage: 40 UNK, UNK
  5. ALTACE [Concomitant]
     Dosage: 5 G, UNK
  6. SOTALOL HYDROCHLORIDE [Concomitant]
     Dosage: 80 G, UNK
  7. ASPIRIN [Concomitant]
     Dosage: 80 MG, DAILY
     Route: 048
  8. SIMVASTATIN [Concomitant]
     Dosage: 20 MG, QPM
  9. K-DUR [Concomitant]
  10. NITROSPRAY [Concomitant]
     Dosage: 0.4 MG, PRN
  11. ALDACTONE [Concomitant]
     Dosage: 25 MG DAILY
     Route: 048
  12. LASIX [Concomitant]
     Dosage: 80 MG, BID
  13. LOPRESSOR [Concomitant]
     Dosage: 100 MG, BID
     Route: 048
  14. POTASSIUM CHLORIDE [Concomitant]
     Dosage: 20 UG, BID
     Route: 048
  15. COUMADIN [Concomitant]
     Dosage: 4 MG DAILY
     Route: 048

REACTIONS (15)
  - APHASIA [None]
  - ARRHYTHMIA [None]
  - CARDIAC DISCOMFORT [None]
  - CARDIAC FAILURE [None]
  - DYSPNOEA [None]
  - DYSPNOEA PAROXYSMAL NOCTURNAL [None]
  - GAIT DISTURBANCE [None]
  - GENERAL PHYSICAL HEALTH DETERIORATION [None]
  - LOSS OF CONSCIOUSNESS [None]
  - ORTHOPNOEA [None]
  - PACEMAKER COMPLICATION [None]
  - SPEECH DISORDER [None]
  - TRANSIENT ISCHAEMIC ATTACK [None]
  - VENTRICULAR FIBRILLATION [None]
  - VENTRICULAR TACHYCARDIA [None]
